FAERS Safety Report 4553067-4 (Version None)
Quarter: 2005Q1

REPORT INFORMATION
  Report Type: 
  Country: None (occurrence: None)
  Receive Date: 20050114
  Receipt Date: 20041222
  Transmission Date: 20050727
  Serious: Yes (Hospitalization)
  Sender: FDA-Public Use
  Company Number: PHBS2004JP17219

PATIENT
  Age: 50 Year
  Sex: Male

DRUGS (2)
  1. DICLOFENAC SODIUM [Suspect]
     Indication: MONARTHRITIS
     Route: 048
  2. DICLOFENAC SODIUM [Suspect]
     Route: 054

REACTIONS (6)
  - ABDOMINAL PAIN [None]
  - ANOREXIA [None]
  - GASTRECTOMY [None]
  - ILEUS [None]
  - INTESTINAL STENOSIS [None]
  - SMALL INTESTINE ULCER [None]
